FAERS Safety Report 24439804 (Version 1)
Quarter: 2024Q4

REPORT INFORMATION
  Report Type: Report from Study
  Country: KR (occurrence: KR)
  Receive Date: 20241015
  Receipt Date: 20241015
  Transmission Date: 20250114
  Serious: Yes (Hospitalization, Other)
  Sender: JOHNSON AND JOHNSON
  Company Number: KR-JNJFOC-20240638051

PATIENT
  Age: 81 Year
  Sex: Female
  Weight: 73.7 kg

DRUGS (10)
  1. LAZERTINIB [Suspect]
     Active Substance: LAZERTINIB
     Indication: Non-small cell lung cancer
     Route: 048
     Dates: start: 20240314, end: 20240324
  2. LAZERTINIB [Suspect]
     Active Substance: LAZERTINIB
     Route: 048
     Dates: start: 20240330, end: 20240403
  3. ELIQUIS [Concomitant]
     Active Substance: APIXABAN
     Indication: Deep vein thrombosis
     Route: 048
     Dates: start: 20240229
  4. ENTELON [Concomitant]
     Indication: Deep vein thrombosis
     Route: 048
     Dates: start: 20240229
  5. CALCIUM DOBESILATE [Concomitant]
     Active Substance: CALCIUM DOBESILATE
     Indication: Deep vein thrombosis
     Route: 048
     Dates: start: 20240229
  6. K CAP [Concomitant]
     Indication: Prophylaxis
     Route: 048
     Dates: start: 20240305, end: 20240405
  7. AMLODIPINE BESYLATE\OLMESARTAN MEDOXOMIL [Concomitant]
     Active Substance: AMLODIPINE BESYLATE\OLMESARTAN MEDOXOMIL
     Indication: Hypertension
     Dosage: 5/20/12.5MG) 1 TABLET
     Route: 048
     Dates: start: 20240311, end: 20240429
  8. PARAMACET ER [Concomitant]
     Indication: Lung neoplasm malignant
     Dosage: 1 TAB
     Dates: start: 20240311
  9. ENOXAPARIN SODIUM [Concomitant]
     Active Substance: ENOXAPARIN SODIUM
     Dosage: 60MG/0.6ML
     Dates: start: 20240307, end: 20240311
  10. ENOXAPARIN SODIUM [Concomitant]
     Active Substance: ENOXAPARIN SODIUM
     Dosage: 80MG/0.8ML
     Dates: start: 20240312, end: 20240313

REACTIONS (2)
  - Melaena [Recovered/Resolved]
  - Anaemia [Recovered/Resolved]

NARRATIVE: CASE EVENT DATE: 20240324
